FAERS Safety Report 18169424 (Version 2)
Quarter: 2021Q1

REPORT INFORMATION
  Report Type: Spontaneous
  Country: GB (occurrence: GB)
  Receive Date: 20200819
  Receipt Date: 20210101
  Transmission Date: 20210419
  Serious: Yes (Death, Other)
  Sender: FDA-Public Use
  Company Number: GB-SA-2020SA205588

PATIENT

DRUGS (3)
  1. CABLIVI [Suspect]
     Active Substance: CAPLACIZUMAB-YHDP
     Dosage: UNK
     Route: 065
     Dates: start: 20200717, end: 20200721
  2. CABLIVI [Suspect]
     Active Substance: CAPLACIZUMAB-YHDP
     Dosage: UNK
     Route: 065
     Dates: start: 20200803
  3. ENOXAPARIN [Concomitant]
     Active Substance: ENOXAPARIN
     Indication: THROMBOSIS PROPHYLAXIS
     Dosage: 40 MG
     Route: 065
     Dates: start: 20200718, end: 20200722

REACTIONS (4)
  - Platelet count decreased [Unknown]
  - Vomiting [Unknown]
  - Rectal haemorrhage [Fatal]
  - ADAMTS13 activity decreased [Unknown]

NARRATIVE: CASE EVENT DATE: 2020
